FAERS Safety Report 6773669-4 (Version None)
Quarter: 2010Q2

REPORT INFORMATION
  Report Type: 
  Country: None (occurrence: None)
  Receive Date: 20100617
  Receipt Date: 20100615
  Transmission Date: 20101027
  Serious: Yes (Hospitalization, Other)
  Sender: FDA-Public Use
  Company Number: US-BIOGENIDEC-2009BI001791

PATIENT
  Sex: Female

DRUGS (2)
  1. TYSABRI [Suspect]
     Indication: MULTIPLE SCLEROSIS
     Route: 042
     Dates: start: 20080616, end: 20090105
  2. TYSABRI [Suspect]
     Route: 042
     Dates: start: 20090601

REACTIONS (20)
  - ACUTE RESPIRATORY DISTRESS SYNDROME [None]
  - APHASIA [None]
  - ASTHENIA [None]
  - CARDIAC OPERATION [None]
  - COLD EXPOSURE INJURY [None]
  - DECUBITUS ULCER [None]
  - DISSEMINATED INTRAVASCULAR COAGULATION [None]
  - DYSPHAGIA [None]
  - HYPOTHERMIA [None]
  - IMMUNE SYSTEM DISORDER [None]
  - MEMORY IMPAIRMENT [None]
  - MOBILITY DECREASED [None]
  - MULTIPLE SCLEROSIS RELAPSE [None]
  - MUSCULAR WEAKNESS [None]
  - NEUROLOGICAL SYMPTOM [None]
  - OPEN WOUND [None]
  - PNEUMONIA ASPIRATION [None]
  - RENAL FAILURE ACUTE [None]
  - SEPTIC SHOCK [None]
  - SKIN ULCER [None]
